FAERS Safety Report 14873857 (Version 2)
Quarter: 2018Q2

REPORT INFORMATION
  Report Type: Report from Study
  Country: DE (occurrence: DE)
  Receive Date: 20180510
  Receipt Date: 20180516
  Transmission Date: 20180711
  Serious: Yes (Hospitalization, Other)
  Sender: FDA-Public Use
  Company Number: DE-SA-2018SA129857

PATIENT
  Age: 44 Year
  Sex: Female

DRUGS (1)
  1. LEMTRADA [Suspect]
     Active Substance: ALEMTUZUMAB
     Indication: MULTIPLE SCLEROSIS
     Route: 041
     Dates: start: 20180206, end: 20180210

REACTIONS (7)
  - Leukopenia [Recovering/Resolving]
  - Asthenia [Not Recovered/Not Resolved]
  - Urticaria [Recovered/Resolved]
  - Neutropenia [Unknown]
  - Dyspnoea exertional [Recovering/Resolving]
  - Lymphocyte count decreased [Recovering/Resolving]
  - Rash [Recovered/Resolved]

NARRATIVE: CASE EVENT DATE: 201802
